FAERS Safety Report 7764769-0 (Version None)
Quarter: 2011Q3

REPORT INFORMATION
  Report Type: 
  Country: None (occurrence: None)
  Receive Date: 20110921
  Receipt Date: 20110921
  Transmission Date: 20111222
  Serious: Yes (Life-Threatening, Hospitalization, Other)
  Sender: FDA-Public Use
  Company Number: None

PATIENT
  Age: 55 Year
  Sex: Male
  Weight: 108.86 kg

DRUGS (1)
  1. DEXILANT [Suspect]
     Indication: GASTROOESOPHAGEAL REFLUX DISEASE
     Dosage: 60MG
     Route: 048

REACTIONS (9)
  - RENAL IMPAIRMENT [None]
  - CONSTIPATION [None]
  - BLOOD GLUCOSE INCREASED [None]
  - FLATULENCE [None]
  - THROAT TIGHTNESS [None]
  - ABDOMINAL DISTENSION [None]
  - CHEST DISCOMFORT [None]
  - VASCULAR GRAFT [None]
  - HYPERTENSION [None]
